FAERS Safety Report 10633444 (Version 2)
Quarter: 2014Q4

REPORT INFORMATION
  Report Type: Spontaneous
  Country: CH (occurrence: CH)
  Receive Date: 20141205
  Receipt Date: 20141230
  Transmission Date: 20150529
  Serious: Yes (Hospitalization, Other)
  Sender: FDA-Public Use
  Company Number: CH-BAYER-2014-175241

PATIENT
  Age: 61 Year
  Sex: Female

DRUGS (1)
  1. BETAFERON [Suspect]
     Active Substance: INTERFERON BETA-1B
     Indication: MULTIPLE SCLEROSIS
     Dosage: 250 ?G, TIW
     Route: 058
     Dates: start: 199512

REACTIONS (5)
  - Pyelonephritis [None]
  - Bladder dysfunction [Not Recovered/Not Resolved]
  - Circulatory collapse [Recovering/Resolving]
  - Dialysis [None]
  - Injection site infection [Recovered/Resolved]

NARRATIVE: CASE EVENT DATE: 2014
